FAERS Safety Report 23124465 (Version 4)
Quarter: 2024Q3

REPORT INFORMATION
  Report Type: Report from Study
  Country: CN (occurrence: CN)
  Receive Date: 20231030
  Receipt Date: 20240925
  Transmission Date: 20241017
  Serious: Yes (Hospitalization, Other)
  Sender: EISAI
  Company Number: CN-Eisai-EC-2023-151215

PATIENT
  Age: 55 Year
  Sex: Female

DRUGS (20)
  1. LENVATINIB [Suspect]
     Active Substance: LENVATINIB
     Indication: Hepatocellular carcinoma
     Route: 048
     Dates: start: 20230823, end: 20231007
  2. DURVALUMAB [Suspect]
     Active Substance: DURVALUMAB
     Indication: Hepatocellular carcinoma
     Dates: start: 20230823, end: 20230823
  3. DURVALUMAB [Suspect]
     Active Substance: DURVALUMAB
     Dates: start: 20231008, end: 20240110
  4. TREMELIMUMAB [Suspect]
     Active Substance: TREMELIMUMAB
     Indication: Hepatocellular carcinoma
     Dosage: UNKNOWN DOSE AND FREQUENCY
     Route: 042
     Dates: start: 20230823, end: 20230823
  5. 1. ENTECAVIR [Concomitant]
     Indication: Hepatitis B
     Route: 048
  6. ACETIC ACID;CALCIUM CHLORIDE;GLUCOSE;MAGNESIUM CHLORIDE;POTASSIUM CHLO [Concomitant]
     Dates: start: 20230824, end: 20230906
  7. ADEMETIONINE BUTANEDISULFONATE [Concomitant]
     Active Substance: ADEMETIONINE BUTANEDISULFONATE
     Dates: start: 20230830, end: 20230905
  8. AMMONIUM GLYCYRRHIZATE\CYSTEINE HYDROCHLORIDE\GLYCINE [Concomitant]
     Active Substance: AMMONIUM GLYCYRRHIZATE\CYSTEINE HYDROCHLORIDE\GLYCINE
     Dates: start: 20230830
  9. METOCLOPRAMIDE DIHYDROCHLORIDE [Concomitant]
     Active Substance: METOCLOPRAMIDE DIHYDROCHLORIDE
     Dates: start: 20230830, end: 20230902
  10. OMEPRAZOLE [Concomitant]
     Active Substance: OMEPRAZOLE
     Dates: start: 20230830, end: 20230903
  11. DEXAMETHASONE SODIUM PHOSPHATE [Concomitant]
     Active Substance: DEXAMETHASONE PHOSPHATE\DEXAMETHASONE SODIUM PHOSPHATE
     Route: 030
     Dates: start: 20230831, end: 20230831
  12. DEXRAZOXANE [Concomitant]
     Active Substance: DEXRAZOXANE
     Dates: start: 20230831, end: 20230831
  13. FLURBIPROFEN AXETIL [Concomitant]
     Active Substance: FLURBIPROFEN AXETIL
     Dates: start: 20230831, end: 20230831
  14. GRANISETRON HYDROCHLORIDE [Concomitant]
     Active Substance: GRANISETRON HYDROCHLORIDE
     Dates: start: 20230831, end: 20230831
  15. PHENOBARBITAL SODIUM [Concomitant]
     Active Substance: PHENOBARBITAL SODIUM
     Dates: start: 20230831, end: 20230831
  16. ACETYSALICYLIC ACID, MORPHINE HYDROCHLORIDE [Concomitant]
     Dates: start: 20230831, end: 20230831
  17. MAGNESIUM ISOGLYCYRRHIZINATE [Concomitant]
     Active Substance: MAGNESIUM ISOGLYCYRRHIZINATE
     Dates: start: 20230901, end: 20230905
  18. INDOMETHACIN [Concomitant]
     Active Substance: INDOMETHACIN
     Dates: start: 20230904, end: 20230904
  19. INDOMETHACIN [Concomitant]
     Active Substance: INDOMETHACIN
     Dates: start: 20230902, end: 20230902
  20. LACTULOSE [Concomitant]
     Active Substance: LACTULOSE
     Dates: start: 20230903, end: 20230903

REACTIONS (1)
  - Suspected drug-induced liver injury [Recovered/Resolved]

NARRATIVE: CASE EVENT DATE: 20230920
